FAERS Safety Report 11340467 (Version 1)
Quarter: 2015Q3

REPORT INFORMATION
  Report Type: Spontaneous
  Country: US (occurrence: None)
  Receive Date: 20150803
  Receipt Date: 20150803
  Transmission Date: 20151125
  Serious: No
  Sender: FDA-Public Use
  Company Number: None

PATIENT
  Age: 58 Year
  Sex: Female

DRUGS (3)
  1. IBRANCE [Suspect]
     Active Substance: PALBOCICLIB
     Indication: BREAST CANCER
     Dosage: QDX21
     Route: 048
     Dates: start: 20150630, end: 20150707
  2. LETROZOLE. [Concomitant]
     Active Substance: LETROZOLE
  3. DEXAMETHASON [Concomitant]
     Active Substance: DEXAMETHASONE

REACTIONS (6)
  - Tourette^s disorder [None]
  - Urinary tract infection [None]
  - Weight decreased [None]
  - Sensitivity of teeth [None]
  - Condition aggravated [None]
  - Restlessness [None]

NARRATIVE: CASE EVENT DATE: 201507
